FAERS Safety Report 12945929 (Version 2)
Quarter: 2017Q1

REPORT INFORMATION
  Report Type: Spontaneous
  Country: BR (occurrence: BR)
  Receive Date: 20161116
  Receipt Date: 20170112
  Transmission Date: 20170428
  Serious: Yes (Hospitalization)
  Sender: FDA-Public Use
  Company Number: BR-ASTRAZENECA-2016SF19592

PATIENT
  Age: 911 Month
  Sex: Female

DRUGS (5)
  1. UNKNOWN [Suspect]
     Active Substance: UNSPECIFIED INGREDIENT
     Indication: COAGULOPATHY
     Route: 065
     Dates: start: 2016, end: 20161229
  2. SYMBICORT [Suspect]
     Active Substance: BUDESONIDE\FORMOTEROL FUMARATE DIHYDRATE
     Indication: CHRONIC OBSTRUCTIVE PULMONARY DISEASE
     Dosage: UNKNOWN DOSE AND FREQUENCY
     Route: 055
     Dates: start: 20160804
  3. NEXIUM [Suspect]
     Active Substance: ESOMEPRAZOLE MAGNESIUM
     Indication: GASTROOESOPHAGEAL REFLUX DISEASE
     Dosage: TWO TIMES A DAY
     Route: 048
     Dates: start: 2014, end: 20161229
  4. NEXIUM [Suspect]
     Active Substance: ESOMEPRAZOLE MAGNESIUM
     Indication: ULCER
     Dosage: TWO TIMES A DAY
     Route: 048
     Dates: start: 2014, end: 20161229
  5. NEXIUM [Suspect]
     Active Substance: ESOMEPRAZOLE MAGNESIUM
     Indication: OESOPHAGITIS
     Dosage: TWO TIMES A DAY
     Route: 048
     Dates: start: 2014, end: 20161229

REACTIONS (5)
  - Choking [Recovered/Resolved]
  - Pneumonia [Recovered/Resolved]
  - Internal haemorrhage [Recovered/Resolved]
  - Blood pressure abnormal [Recovered/Resolved]
  - Tremor [Recovered/Resolved]

NARRATIVE: CASE EVENT DATE: 201608
